FAERS Safety Report 25646517 (Version 1)
Quarter: 2025Q3

REPORT INFORMATION
  Report Type: Report from Study
  Country: GB (occurrence: GB)
  Receive Date: 20250805
  Receipt Date: 20250805
  Transmission Date: 20251021
  Serious: Yes (Hospitalization, Other)
  Sender: ABBVIE
  Company Number: GB-ABBVIE-6398466

PATIENT
  Age: 54 Year
  Sex: Female

DRUGS (2)
  1. CARBIDOPA\LEVODOPA [Suspect]
     Active Substance: CARBIDOPA\LEVODOPA
     Indication: Parkinson^s disease
     Route: 050
  2. CARBIDOPA\LEVODOPA [Suspect]
     Active Substance: CARBIDOPA\LEVODOPA

REACTIONS (6)
  - Acute psychosis [Unknown]
  - Post-traumatic stress disorder [Unknown]
  - Encephalitis [Unknown]
  - Wheelchair user [Unknown]
  - Thinking abnormal [Unknown]
  - Neuroprosthesis implantation [Unknown]

NARRATIVE: CASE EVENT DATE: 20240101
